FAERS Safety Report 18848658 (Version 1)
Quarter: 2021Q1

REPORT INFORMATION
  Report Type: Spontaneous
  Country: AU (occurrence: AU)
  Receive Date: 20210205
  Receipt Date: 20210205
  Transmission Date: 20210419
  Serious: Yes (Other)
  Sender: FDA-Public Use
  Company Number: AU-INSUD PHARMA-2101AU00094

PATIENT

DRUGS (4)
  1. ESTRASORB [Suspect]
     Active Substance: ESTRADIOL HEMIHYDRATE
     Indication: TRANSGENDER HORMONAL THERAPY
     Dosage: SWITCHED TO 100 MG SUBDERMAL IMPLANTS, 6?12 MONTHLY
     Route: 059
  2. ESTRASORB [Suspect]
     Active Substance: ESTRADIOL HEMIHYDRATE
     Dosage: INITIALLY CONSISTED OF TOPICAL ESTRADIOL GEL AND CPA
     Route: 061
  3. PROGESTERONE. [Suspect]
     Active Substance: PROGESTERONE
     Indication: TRANSGENDER HORMONAL THERAPY
     Dosage: BIOIDENTICAL PROGESTERONE 100 MILLIGRAM DAILY
     Route: 065
  4. CYPROTERONE ACETATE [Suspect]
     Active Substance: CYPROTERONE ACETATE
     Indication: TRANSGENDER HORMONAL THERAPY
     Dosage: 25 MILLIGRAM DAILY
     Route: 065

REACTIONS (2)
  - Galactorrhoea [Unknown]
  - Hyperprolactinaemia [Recovering/Resolving]
